FAERS Safety Report 9187795 (Version 1)
Quarter: 2013Q1

REPORT INFORMATION
  Report Type: Spontaneous
  Country: US (occurrence: US)
  Receive Date: 20130325
  Receipt Date: 20130325
  Transmission Date: 20140127
  Serious: No
  Sender: FDA-Public Use
  Company Number: US-MYLANLABS-2012S1008915

PATIENT
  Age: 48 Year
  Sex: Female

DRUGS (2)
  1. FENTANYL TRANSDERMAL SYSTEM [Suspect]
     Indication: BACK PAIN
     Dosage: CHANGE Q72HR
     Route: 062
     Dates: start: 201110
  2. FENTANYL TRANSDERMAL SYSTEM [Suspect]
     Dosage: CHANGE Q72HR
     Route: 062
     Dates: start: 201110

REACTIONS (4)
  - Dizziness [Not Recovered/Not Resolved]
  - Hot flush [Not Recovered/Not Resolved]
  - Cold sweat [Not Recovered/Not Resolved]
  - Hyperhidrosis [Not Recovered/Not Resolved]
